FAERS Safety Report 19218947 (Version 1)
Quarter: 2021Q2

REPORT INFORMATION
  Report Type: Spontaneous
  Country: US (occurrence: US)
  Receive Date: 20210505
  Receipt Date: 20210505
  Transmission Date: 20210717
  Serious: No
  Sender: FDA-Public Use
  Company Number: US-ROCHE-2598525

PATIENT
  Age: 74 Year
  Sex: Female
  Weight: 78 kg

DRUGS (18)
  1. ATORVASTATIN [Concomitant]
     Active Substance: ATORVASTATIN
  2. FLOVENT HFA [Concomitant]
     Active Substance: FLUTICASONE PROPIONATE
     Dosage: 110 MCG/AC
  3. MELATONIN [Concomitant]
     Active Substance: MELATONIN
  4. HYDROCHLOROTHIAZIDE. [Concomitant]
     Active Substance: HYDROCHLOROTHIAZIDE
     Route: 048
  5. LISINOPRIL. [Concomitant]
     Active Substance: LISINOPRIL
  6. ESOMEPRAZOLE. [Concomitant]
     Active Substance: ESOMEPRAZOLE MAGNESIUM
     Route: 048
  7. ALBUTEROL. [Concomitant]
     Active Substance: ALBUTEROL
  8. PRIMIDONE. [Concomitant]
     Active Substance: PRIMIDONE
  9. ALEVE [Concomitant]
     Active Substance: NAPROXEN SODIUM
     Route: 048
     Dates: start: 201712
  10. ESBRIET [Suspect]
     Active Substance: PIRFENIDONE
     Indication: IDIOPATHIC PULMONARY FIBROSIS
     Dosage: TAKE 3 CAP BY MOUTH THREE TIMES A DAY WITH MEAL
     Route: 048
  11. ESBRIET [Suspect]
     Active Substance: PIRFENIDONE
     Indication: HYPERSENSITIVITY PNEUMONITIS
     Route: 048
     Dates: start: 20191228
  12. OXYGEN. [Concomitant]
     Active Substance: OXYGEN
  13. ASPIRIN. [Concomitant]
     Active Substance: ASPIRIN
  14. NEXIUM [Concomitant]
     Active Substance: ESOMEPRAZOLE MAGNESIUM
  15. OXYGEN. [Concomitant]
     Active Substance: OXYGEN
     Dates: start: 201910
  16. ESBRIET [Suspect]
     Active Substance: PIRFENIDONE
     Dosage: 2 CAPSULES OF 267MG THREE TIMES A DAY ; ONGOING: YES
     Route: 048
  17. METOPROLOL. [Concomitant]
     Active Substance: METOPROLOL
  18. AMOXCILLIN [Concomitant]
     Active Substance: AMOXICILLIN

REACTIONS (4)
  - Rash [Not Recovered/Not Resolved]
  - Gastrointestinal disorder [Unknown]
  - Pruritus [Recovering/Resolving]
  - Diarrhoea [Recovered/Resolved]

NARRATIVE: CASE EVENT DATE: 202001
